FAERS Safety Report 7519644-3 (Version None)
Quarter: 2011Q2

REPORT INFORMATION
  Report Type: 
  Country: None (occurrence: None)
  Receive Date: 20110602
  Receipt Date: 20110524
  Transmission Date: 20111010
  Serious: Yes (Death, Life-Threatening, Hospitalization)
  Sender: FDA-Public Use
  Company Number: B0614871A

PATIENT
  Sex: Male

DRUGS (18)
  1. SERETIDE [Suspect]
     Indication: CHRONIC OBSTRUCTIVE PULMONARY DISEASE
     Dosage: 500MCG PER DAY
     Route: 055
     Dates: start: 20091008, end: 20100129
  2. DECADRON [Concomitant]
     Dates: start: 20100119, end: 20100121
  3. DIOVAN [Concomitant]
     Route: 048
     Dates: start: 20070712, end: 20100129
  4. NEOPHYLLIN [Concomitant]
     Route: 042
     Dates: start: 20100114, end: 20100116
  5. VEEN-3G [Concomitant]
     Route: 042
     Dates: start: 20100114, end: 20100116
  6. SEISHOKU [Concomitant]
     Dates: start: 20100114, end: 20100118
  7. ACTIT [Concomitant]
     Route: 042
     Dates: start: 20100119, end: 20100121
  8. TPN ELECTROLYTES IN PLASTIC CONTAINER [Concomitant]
     Route: 042
     Dates: start: 20100110, end: 20100116
  9. FAMOTIDINE [Concomitant]
     Route: 042
     Dates: start: 20100114, end: 20100118
  10. DIGOXIN [Concomitant]
     Indication: ARRHYTHMIA
     Route: 048
     Dates: start: 20090430, end: 20100129
  11. PAZUCROSS [Concomitant]
     Dosage: 1000MG PER DAY
     Route: 042
     Dates: start: 20100110, end: 20100121
  12. DECADRON [Concomitant]
     Dates: start: 20100114, end: 20100116
  13. TPN ELECTROLYTES IN PLASTIC CONTAINER [Concomitant]
     Route: 042
     Dates: start: 20100122, end: 20100129
  14. VEEN-3G [Concomitant]
     Route: 042
     Dates: start: 20100122, end: 20100129
  15. UNIPHYL [Concomitant]
     Route: 048
     Dates: start: 20060105, end: 20100129
  16. SPIRIVA [Concomitant]
     Route: 055
     Dates: start: 20050330, end: 20100129
  17. CLARITHROMYCIN [Concomitant]
     Indication: CHRONIC SINUSITIS
     Route: 048
     Dates: start: 20060810, end: 20100129
  18. NEOPHYLLIN [Concomitant]
     Route: 042
     Dates: start: 20100119, end: 20100129

REACTIONS (7)
  - PNEUMONIA BACTERIAL [None]
  - PRODUCTIVE COUGH [None]
  - DYSPNOEA [None]
  - COUGH [None]
  - PYREXIA [None]
  - PNEUMONIA [None]
  - PNEUMONIA ASPIRATION [None]
